FAERS Safety Report 4450299-0 (Version None)
Quarter: 2004Q3

REPORT INFORMATION
  Report Type: 
  Country: None (occurrence: None)
  Receive Date: 20040914
  Receipt Date: 20040906
  Transmission Date: 20050211
  Serious: Yes (Hospitalization)
  Sender: FDA-Public Use
  Company Number: 2004CG01738

PATIENT
  Age: 81 Year
  Sex: Male

DRUGS (7)
  1. NEXIUM [Suspect]
     Dosage: 40 MG DAILY PO
     Route: 048
     Dates: end: 20040812
  2. PLAVIX [Suspect]
     Dosage: 1 DF DAILY PO
     Route: 048
     Dates: start: 20040515, end: 20040801
  3. DISTILBENE [Suspect]
     Dosage: 1 DF TID PO
     Route: 048
     Dates: start: 20040704
  4. ALDALIX [Suspect]
     Dosage: 50 + 20 MG
     Dates: end: 20040728
  5. CORTANCYL [Suspect]
  6. ACETAMINOPHEN [Suspect]
     Indication: PAIN
     Dosage: 2 DF TID
  7. CETORNAN [Suspect]
     Dosage: 1 DF BID

REACTIONS (7)
  - GENERAL PHYSICAL HEALTH DETERIORATION [None]
  - NORMOCHROMIC NORMOCYTIC ANAEMIA [None]
  - ORAL CANDIDIASIS [None]
  - PETECHIAE [None]
  - PYREXIA [None]
  - THROMBOCYTOPENIC PURPURA [None]
  - WEIGHT DECREASED [None]
